FAERS Safety Report 13384945 (Version 2)
Quarter: 2017Q2

REPORT INFORMATION
  Report Type: Spontaneous
  Country: US (occurrence: US)
  Receive Date: 20170329
  Receipt Date: 20170411
  Transmission Date: 20170830
  Serious: Yes (Other)
  Sender: FDA-Public Use
  Company Number: US-AKORN PHARMACEUTICALS-2017AKN00339

PATIENT
  Sex: Male

DRUGS (2)
  1. MYORISAN [Suspect]
     Active Substance: ISOTRETINOIN
     Dosage: UNK
     Dates: start: 2017
  2. MYORISAN [Suspect]
     Active Substance: ISOTRETINOIN
     Dosage: UNK
     Dates: start: 20170214, end: 2017

REACTIONS (5)
  - Depression [Unknown]
  - Intentional product misuse [Unknown]
  - Crying [Unknown]
  - Feelings of worthlessness [Unknown]
  - Fatigue [Unknown]

NARRATIVE: CASE EVENT DATE: 2017
